FAERS Safety Report 8828873 (Version 7)
Quarter: 2013Q3

REPORT INFORMATION
  Report Type: Report from Study
  Country: IT (occurrence: IT)
  Receive Date: 20121008
  Receipt Date: 20130718
  Transmission Date: 20140515
  Serious: Yes (Hospitalization)
  Sender: FDA-Public Use
  Company Number: IT-ROCHE-1136298

PATIENT
  Age: 77 Year
  Sex: Male
  Weight: 69 kg

DRUGS (63)
  1. PERTUZUMAB [Suspect]
     Indication: GASTRIC CANCER
     Dosage: LOADING DOSE
     Route: 042
     Dates: start: 20120404
  2. PERTUZUMAB [Suspect]
     Dosage: DOSE PRIOR TO EVENT: 420MG ON 31/AUG/2012
     Route: 042
  3. TRASTUZUMAB [Suspect]
     Indication: GASTRIC CANCER
     Dosage: LOADING DOSE
     Route: 042
     Dates: start: 20120404
  4. TRASTUZUMAB [Suspect]
     Dosage: DOSE PRIOR TO EVENT: 568MG ON 31/AUG/2012
     Route: 042
  5. CAPECITABINE [Suspect]
     Indication: GASTRIC CANCER
     Dosage: DOSE PRIOR TO EVENT: 500MG/M2 ON 14/SEP/2012
     Route: 048
     Dates: start: 20120404
  6. CISPLATIN [Suspect]
     Indication: GASTRIC CANCER
     Dosage: DOSE PRIOR TO EVENT:80MG/M2 ON 31/AUG/2012
     Route: 042
     Dates: start: 20120405
  7. LANSOPRAZOLE [Concomitant]
     Indication: PROPHYLAXIS AGAINST GASTROINTESTINAL ULCER
     Route: 048
     Dates: start: 201108
  8. RANITIDINE (INTRAVENOUS) [Concomitant]
     Indication: PROPHYLAXIS AGAINST GASTROINTESTINAL ULCER
     Route: 042
     Dates: start: 20120607
  9. RANITIDINE (INTRAVENOUS) [Concomitant]
     Route: 042
     Dates: start: 20120801, end: 20120803
  10. RANITIDINE (INTRAVENOUS) [Concomitant]
     Route: 042
     Dates: start: 20120831, end: 20120901
  11. RANITIDINE (INTRAVENOUS) [Concomitant]
     Route: 042
     Dates: start: 20120801, end: 20120803
  12. GRANISETRON [Concomitant]
     Indication: PROPHYLAXIS OF NAUSEA AND VOMITING
     Route: 042
     Dates: start: 20120404, end: 20120831
  13. GRANISETRON [Concomitant]
     Route: 042
     Dates: start: 20120801, end: 20120803
  14. GRANISETRON [Concomitant]
     Route: 030
     Dates: start: 20120803, end: 20120803
  15. GRANISETRON [Concomitant]
     Route: 042
     Dates: start: 20120831, end: 20120901
  16. GRANISETRON [Concomitant]
     Route: 030
     Dates: start: 20120901, end: 20120902
  17. DEXAMETHASONE [Concomitant]
     Indication: PROPHYLAXIS OF NAUSEA AND VOMITING
     Route: 042
     Dates: start: 20120404, end: 20120831
  18. DEXAMETHASONE [Concomitant]
     Indication: SUPPORTIVE CARE
     Route: 042
     Dates: start: 20120801, end: 20120803
  19. DEXAMETHASONE [Concomitant]
     Route: 030
     Dates: start: 20120803, end: 20120803
  20. DEXAMETHASONE [Concomitant]
     Dosage: 32 DROPS
     Route: 048
     Dates: start: 20120804, end: 20120804
  21. DEXAMETHASONE [Concomitant]
     Route: 042
     Dates: start: 20120831, end: 20120901
  22. DEXAMETHASONE [Concomitant]
     Dosage: 32 DROPS
     Route: 048
     Dates: start: 20120902, end: 20120903
  23. FILGRASTIM [Concomitant]
     Indication: NEUTROPENIA
     Dosage: 30 (DOSE UNIT :OTHER)
     Route: 058
     Dates: start: 20120806, end: 20120808
  24. FILGRASTIM [Concomitant]
     Dosage: 30 (DOSE UNIT :OTHER)
     Route: 058
     Dates: start: 20120822, end: 20120822
  25. FILGRASTIM [Concomitant]
     Dosage: 30 (DOSE UNIT :OTHER)
     Route: 058
     Dates: start: 20120905, end: 20120906
  26. FILGRASTIM [Concomitant]
     Dosage: 30 (DOSE UNIT :OTHER)
     Route: 058
     Dates: start: 20120921, end: 20120921
  27. SALINE SOLUTION [Concomitant]
     Indication: HYPONATRAEMIA
     Route: 042
     Dates: start: 20120404, end: 20120831
  28. SALINE SOLUTION [Concomitant]
     Indication: HYPOCHLORAEMIA
     Route: 042
     Dates: start: 20120802, end: 20120802
  29. SALINE SOLUTION [Concomitant]
     Indication: BLOOD CREATININE INCREASED
     Route: 042
     Dates: start: 20120808, end: 20120808
  30. SALINE SOLUTION [Concomitant]
     Indication: SUPPORTIVE CARE
     Route: 042
     Dates: start: 20120822, end: 20120822
  31. SALINE SOLUTION [Concomitant]
     Indication: HYPERKALAEMIA
     Route: 042
     Dates: start: 20120907, end: 20120907
  32. SALINE SOLUTION [Concomitant]
     Route: 042
     Dates: start: 20120927, end: 20120927
  33. SALINE SOLUTION [Concomitant]
     Route: 042
     Dates: start: 20120705, end: 20120705
  34. SALINE SOLUTION [Concomitant]
     Route: 042
     Dates: start: 20120718, end: 20120718
  35. SALINE SOLUTION [Concomitant]
     Route: 042
     Dates: start: 20121112, end: 20121112
  36. SALINE SOLUTION [Concomitant]
     Route: 042
     Dates: start: 20121019, end: 20121019
  37. SALINE SOLUTION [Concomitant]
     Route: 042
     Dates: start: 20120927, end: 20120927
  38. SALINE SOLUTION [Concomitant]
     Route: 042
     Dates: start: 20130131, end: 20130131
  39. FINASTERIDE [Concomitant]
     Indication: BENIGN PROSTATIC HYPERPLASIA
     Route: 048
     Dates: start: 2010
  40. ENOXAPARINA SODICA [Concomitant]
     Route: 058
     Dates: start: 20120406
  41. QUINAPRIL [Concomitant]
     Indication: HYPERTENSION
     Route: 048
     Dates: start: 20120524, end: 20130121
  42. QUINAPRIL [Concomitant]
     Route: 048
     Dates: start: 20130122
  43. FLUCONAZOLE [Concomitant]
     Indication: STOMATITIS
     Route: 048
     Dates: start: 20120823, end: 20120824
  44. FLUCONAZOLE [Concomitant]
     Route: 048
     Dates: start: 20120928, end: 20121002
  45. MAGALDRATE [Concomitant]
     Indication: ABDOMINAL PAIN UPPER
     Route: 048
     Dates: start: 20120922, end: 20121014
  46. PARACETAMOL [Concomitant]
     Indication: SUPPORTIVE CARE
     Route: 048
     Dates: start: 20120404, end: 20130103
  47. CLORFENAMINA [Concomitant]
     Indication: SUPPORTIVE CARE
     Route: 048
     Dates: start: 20120404, end: 20130103
  48. MAGNESIUM SULFATE [Concomitant]
     Indication: SUPPORTIVE CARE
     Dosage: DOSE UNIT: AMPULE
     Route: 042
     Dates: start: 20120404, end: 20120831
  49. CHLORURE DE POTASSIUM [Concomitant]
     Indication: SUPPORTIVE CARE
     Route: 042
     Dates: start: 20120404, end: 20120831
  50. LEVOFLOXACIN [Concomitant]
     Indication: PROPHYLAXIS
     Route: 048
     Dates: start: 20120705, end: 20120709
  51. LEVOFLOXACIN [Concomitant]
     Indication: COUGH
     Route: 048
     Dates: start: 20130111, end: 20130120
  52. LENOGRASTIM [Concomitant]
     Indication: NEUTROPENIA
     Route: 058
     Dates: start: 20120714, end: 20120715
  53. LENOGRASTIM [Concomitant]
     Route: 058
     Dates: start: 20120720, end: 20120721
  54. BETAMETHASONE [Concomitant]
     Indication: SKIN LESION
     Route: 061
     Dates: start: 20121019, end: 20121021
  55. BISOPROLOL [Concomitant]
     Indication: CARDIAC FAILURE ACUTE
     Route: 048
     Dates: start: 20130114, end: 20130114
  56. BISOPROLOL [Concomitant]
     Route: 048
     Dates: start: 20130115, end: 20130115
  57. BISOPROLOL [Concomitant]
     Route: 048
     Dates: start: 20130116, end: 20130117
  58. BISOPROLOL [Concomitant]
     Route: 048
     Dates: start: 20130118, end: 20130121
  59. BISOPROLOL [Concomitant]
     Route: 048
     Dates: start: 20130122
  60. FUROSEMIDE [Concomitant]
     Indication: RALES
     Route: 042
     Dates: start: 20130201, end: 20130201
  61. FUROSEMIDE [Concomitant]
     Route: 048
     Dates: start: 20130202
  62. ACETYLCYSTEINE [Concomitant]
     Indication: RALES
     Route: 048
     Dates: start: 20130201
  63. FERRIC SODIUM GLUCONATE [Concomitant]
     Indication: HYPOSIDERAEMIA
     Route: 042
     Dates: start: 20130114, end: 20130121

REACTIONS (1)
  - Myoglobin blood increased [Recovered/Resolved]
